FAERS Safety Report 8934000 (Version 1)
Quarter: 2012Q4

REPORT INFORMATION
  Report Type: 
  Country: AU (occurrence: NZ)
  Receive Date: 20121129
  Receipt Date: 20121129
  Transmission Date: 20130627
  Serious: Yes (Hospitalization, Other)
  Sender: FDA-Public Use
  Company Number: NZ-B.I. PHARMACEUTICALS,INC./RIDGEFIELD-2012-AU-01745AU

PATIENT
  Age: 72 Year
  Sex: Female

DRUGS (6)
  1. PRADAXA [Suspect]
     Indication: ATRIAL FIBRILLATION
     Dosage: 300 mg
     Dates: start: 201109, end: 20120918
  2. PRADAXA [Suspect]
     Dates: start: 20120918, end: 20120920
  3. DIGOXIN [Concomitant]
  4. LANSOPRAZOLE [Concomitant]
  5. ATORVASTATIN [Concomitant]
  6. DILTIAZEM [Concomitant]

REACTIONS (3)
  - Gastrointestinal haemorrhage [Recovered/Resolved]
  - Colon cancer [Unknown]
  - Haemoglobin decreased [Unknown]
